FAERS Safety Report 23065014 (Version 1)
Quarter: 2023Q4

REPORT INFORMATION
  Report Type: Spontaneous
  Country: US (occurrence: US)
  Receive Date: 20231013
  Receipt Date: 20231013
  Transmission Date: 20240109
  Serious: Yes (Death, Other)
  Sender: FDA-Public Use
  Company Number: US-TEVA-2023-US-2934466

PATIENT
  Age: 55 Year
  Sex: Male

DRUGS (2)
  1. SPIRONOLACTONE [Suspect]
     Active Substance: SPIRONOLACTONE
     Indication: Feminisation acquired
     Dosage: 100 MILLIGRAM DAILY;
     Route: 065
  2. ESTRADIOL [Suspect]
     Active Substance: ESTRADIOL
     Indication: Feminisation acquired
     Dosage: 100 MICROGRAM DAILY;
     Route: 062

REACTIONS (5)
  - Cardiac arrest [Fatal]
  - Hyperkalaemia [Fatal]
  - Symptom masked [Fatal]
  - Ventricular tachycardia [Fatal]
  - Intentional product misuse [Unknown]
